FAERS Safety Report 25041648 (Version 1)
Quarter: 2025Q1

REPORT INFORMATION
  Report Type: Other
  Country: TN (occurrence: TN)
  Receive Date: 20250305
  Receipt Date: 20250305
  Transmission Date: 20250409
  Serious: Yes (Other)
  Sender: LYNE LABORATORIES
  Company Number: TN-Lyne Laboratories Inc.-2172262

PATIENT
  Age: 29 Year
  Sex: Female

DRUGS (4)
  1. DEXAMETHASONE [Suspect]
     Active Substance: DEXAMETHASONE
     Indication: Glomerulonephritis rapidly progressive
  2. CYCLOPHOSPHAMIDE [Suspect]
     Active Substance: CYCLOPHOSPHAMIDE
  3. VALPROATE SODIUM [Concomitant]
     Active Substance: VALPROATE SODIUM
  4. SOLU-MEDROL [Suspect]
     Active Substance: METHYLPREDNISOLONE SODIUM SUCCINATE

REACTIONS (2)
  - Thrombocytopenia [Recovering/Resolving]
  - Product use in unapproved indication [Unknown]
